FAERS Safety Report 4502549-X (Version None)
Quarter: 2004Q4

REPORT INFORMATION
  Report Type: 
  Country: None (occurrence: None)
  Receive Date: 20041110
  Receipt Date: 20041026
  Transmission Date: 20050328
  Serious: Yes (Death)
  Sender: FDA-Public Use
  Company Number: 2004-DE-05618GD

PATIENT

DRUGS (1)
  1. TIOTROPIUM-BROMIDE (TIOTROPIUM BROMIDE) (NR) (TIOTROPIUM) [Suspect]

REACTIONS (15)
  - CHEST DISCOMFORT [None]
  - CHOKING [None]
  - CHRONIC OBSTRUCTIVE AIRWAYS DISEASE [None]
  - COUGH [None]
  - DRUG INEFFECTIVE [None]
  - DRUG INTOLERANCE [None]
  - DRY MOUTH [None]
  - DYSPHAGIA [None]
  - DYSPNOEA [None]
  - EYE PAIN [None]
  - LOWER RESPIRATORY TRACT INFECTION [None]
  - MALAISE [None]
  - NEOPLASM MALIGNANT [None]
  - PHARYNGITIS [None]
  - RESPIRATORY DISORDER [None]
